FAERS Safety Report 13911550 (Version 1)
Quarter: 2017Q3

REPORT INFORMATION
  Report Type: Spontaneous
  Country: GR (occurrence: GR)
  Receive Date: 20170828
  Receipt Date: 20170828
  Transmission Date: 20171127
  Serious: Yes (Other)
  Sender: FDA-Public Use
  Company Number: GR-BAYER-2017-119512

PATIENT
  Age: 52 Year
  Sex: Female

DRUGS (4)
  1. INTERFERON BETA - 1B [Suspect]
     Active Substance: INTERFERON BETA-1B
     Indication: MULTIPLE SCLEROSIS
     Dosage: UNK
     Route: 065
  2. FINGOLIMOD [Suspect]
     Active Substance: FINGOLIMOD
     Dosage: UNK
  3. FINGOLIMOD [Suspect]
     Active Substance: FINGOLIMOD
     Dosage: UNK
  4. GLATIRAMER ACETATE. [Concomitant]
     Active Substance: GLATIRAMER ACETATE
     Dosage: UNK

REACTIONS (5)
  - Myelodysplastic syndrome [Recovering/Resolving]
  - Anaemia [Recovering/Resolving]
  - Hyperthyroidism [Recovering/Resolving]
  - Hypothyroidism [None]
  - Neutropenia [Recovering/Resolving]
